FAERS Safety Report 23954144 (Version 1)
Quarter: 2024Q2

REPORT INFORMATION
  Report Type: Spontaneous
  Country: US (occurrence: US)
  Receive Date: 20240609
  Receipt Date: 20240609
  Transmission Date: 20240716
  Serious: Yes (Other)
  Sender: FDA-Public Use
  Company Number: US-NOVOPROD-1231798

PATIENT
  Sex: Female

DRUGS (1)
  1. OZEMPIC [Suspect]
     Active Substance: SEMAGLUTIDE
     Indication: Product used for unknown indication
     Dosage: 0.5 MG (TWO DOSES OF 0.25 MG)
     Route: 058

REACTIONS (4)
  - Neoplasm malignant [Not Recovered/Not Resolved]
  - Chronic disease [Not Recovered/Not Resolved]
  - Product communication issue [Unknown]
  - Incorrect dose administered [Unknown]
